FAERS Safety Report 18581453 (Version 1)
Quarter: 2020Q4

REPORT INFORMATION
  Report Type: Spontaneous
  Country: US (occurrence: US)
  Receive Date: 20201202
  Receipt Date: 20201202
  Transmission Date: 20210114
  Serious: Yes (Hospitalization)
  Sender: FDA-Public Use
  Company Number: None

PATIENT
  Age: 40 Year
  Sex: Male

DRUGS (2)
  1. OLANZAPINE (OLANZAPINE 20MG TAB) [Suspect]
     Active Substance: OLANZAPINE
     Indication: AFFECTIVE DISORDER
     Route: 048
     Dates: start: 20190110, end: 20190301
  2. DIVALPROEX (DIVALPROEX NA 500MG TAB, SA) [Suspect]
     Active Substance: DIVALPROEX SODIUM
     Indication: AFFECTIVE DISORDER
     Route: 048
     Dates: start: 20190122, end: 20190301

REACTIONS (2)
  - Hepatitis [None]
  - Acute hepatic failure [None]

NARRATIVE: CASE EVENT DATE: 20190228
